FAERS Safety Report 25610783 (Version 2)
Quarter: 2025Q4

REPORT INFORMATION
  Report Type: Spontaneous
  Country: US (occurrence: US)
  Receive Date: 20250728
  Receipt Date: 20251015
  Transmission Date: 20260118
  Serious: No
  Sender: LEO PHARM
  Company Number: US-LEO Pharma-381660

PATIENT
  Age: 57 Year
  Sex: Female
  Weight: 88 kg

DRUGS (1)
  1. ADBRY [Suspect]
     Active Substance: TRALOKINUMAB-LDRM
     Indication: Dermatitis atopic
     Dosage: 600 MG FOR THE STARTER DOSE

REACTIONS (1)
  - Drug ineffective [Unknown]
